FAERS Safety Report 11325215 (Version 4)
Quarter: 2015Q4

REPORT INFORMATION
  Report Type: Report from Study
  Country: US (occurrence: US)
  Receive Date: 20150730
  Receipt Date: 20151130
  Transmission Date: 20160304
  Serious: Yes (Other)
  Sender: FDA-Public Use
  Company Number: US-ACTELION-A-NJ2015-121568

PATIENT
  Age: 69 Year
  Sex: Female

DRUGS (2)
  1. MACITENTAN [Suspect]
     Active Substance: MACITENTAN
     Indication: PULMONARY HYPERTENSION
     Dosage: 10 MG, QD
     Route: 048
     Dates: start: 20140210
  2. ADCIRCA [Concomitant]
     Active Substance: TADALAFIL

REACTIONS (11)
  - Loss of control of legs [Unknown]
  - Syncope [Unknown]
  - Fluid retention [Unknown]
  - Breast cancer [Unknown]
  - Pain in extremity [Unknown]
  - Arthralgia [Unknown]
  - Petit mal epilepsy [Unknown]
  - Seizure [Unknown]
  - Fall [Unknown]
  - Partial seizures [Unknown]
  - Dysuria [Unknown]
